FAERS Safety Report 7479655-3 (Version None)
Quarter: 2011Q2

REPORT INFORMATION
  Report Type: 
  Country: None (occurrence: None)
  Receive Date: 20110513
  Receipt Date: 20110512
  Transmission Date: 20111010
  Serious: Yes (Hospitalization)
  Sender: FDA-Public Use
  Company Number: HU-ABBOTT-11P-076-0724313-00

PATIENT
  Sex: Male
  Weight: 77.7 kg

DRUGS (1)
  1. ZEMPLAR [Suspect]
     Indication: RENAL FAILURE CHRONIC
     Route: 042
     Dates: start: 20110112

REACTIONS (1)
  - BASAL CELL CARCINOMA [None]
